FAERS Safety Report 4913051-5 (Version None)
Quarter: 2006Q1

REPORT INFORMATION
  Report Type: 
  Country: None (occurrence: None)
  Receive Date: 20060210
  Receipt Date: 20060127
  Transmission Date: 20060701
  Serious: Yes (Hospitalization)
  Sender: FDA-Public Use
  Company Number: S06-USA-00343-01

PATIENT
  Age: 83 Year
  Sex: Female
  Weight: 72.5755 kg

DRUGS (15)
  1. CELEXA [Suspect]
     Dosage: 20 MG QD PO
     Route: 048
     Dates: start: 20010101
  2. LEXAPRO [Suspect]
     Dates: start: 20050801
  3. LEXAPRO [Suspect]
  4. HALDOL [Suspect]
     Indication: DEMENTIA
     Dates: start: 20010725, end: 20010101
  5. RISPERDAL [Suspect]
     Indication: HALLUCINATION
     Dosage: 0.5 MG BID PO
     Route: 048
     Dates: start: 20010101, end: 20030101
  6. ARICEPT [Suspect]
     Indication: DEMENTIA ALZHEIMER'S TYPE
     Dosage: 2.5 MG QD PO
     Route: 048
     Dates: end: 20050101
  7. ARICEPT [Suspect]
     Indication: DEMENTIA ALZHEIMER'S TYPE
     Dosage: 5 MG QD PO
     Route: 048
  8. SYNTHROID [Concomitant]
  9. LOPRESSOR [Concomitant]
  10. EPOGEN [Concomitant]
  11. PROTONIX [Concomitant]
  12. PROMOD (PROGLUMIDE) [Concomitant]
  13. FERROUS SULFATE TAB [Concomitant]
  14. VITAMIN E [Concomitant]
  15. MULTIVITAMIN (NOS) [Concomitant]

REACTIONS (27)
  - ABASIA [None]
  - APHASIA [None]
  - AREFLEXIA [None]
  - CEREBRAL ATROPHY [None]
  - CEREBRAL ISCHAEMIA [None]
  - CEREBRAL VENTRICLE DILATATION [None]
  - CHRONIC SINUSITIS [None]
  - CONFUSIONAL STATE [None]
  - DIARRHOEA [None]
  - DYSARTHRIA [None]
  - DYSTONIA [None]
  - EXTRAPYRAMIDAL DISORDER [None]
  - FALL [None]
  - GAIT DISTURBANCE [None]
  - HALLUCINATION [None]
  - JOINT STIFFNESS [None]
  - MUSCLE RIGIDITY [None]
  - NERVOUS SYSTEM DISORDER [None]
  - NORMAL PRESSURE HYDROCEPHALUS [None]
  - PERONEAL NERVE PALSY [None]
  - SCIATICA [None]
  - SOMNOLENCE [None]
  - SPINAL COLUMN STENOSIS [None]
  - SPINAL CORD COMPRESSION [None]
  - TARDIVE DYSKINESIA [None]
  - VOMITING [None]
  - WEIGHT DECREASED [None]
